FAERS Safety Report 11692561 (Version 2)
Quarter: 2016Q1

REPORT INFORMATION
  Report Type: Spontaneous
  Country: US (occurrence: US)
  Receive Date: 20151103
  Receipt Date: 20160107
  Transmission Date: 20160525
  Serious: No
  Sender: FDA-Public Use
  Company Number: US-PFIZER INC-2015360656

PATIENT
  Age: 57 Year
  Sex: Male
  Weight: 86 kg

DRUGS (2)
  1. GABAPENTIN. [Suspect]
     Active Substance: GABAPENTIN
     Indication: NEUROPATHY PERIPHERAL
     Dosage: 300 MG, 3X/DAY
  2. BYSTOLIC [Interacting]
     Active Substance: NEBIVOLOL HYDROCHLORIDE
     Dosage: 300 MG, DAILY (PER DAY)

REACTIONS (6)
  - Drug interaction [Unknown]
  - Product use issue [Unknown]
  - Inflammation [Unknown]
  - Pruritus [Unknown]
  - Skin irritation [Unknown]
  - Peripheral swelling [Unknown]
